FAERS Safety Report 5674674-1 (Version None)
Quarter: 2008Q1

REPORT INFORMATION
  Report Type: 
  Country: None (occurrence: None)
  Receive Date: 20080320
  Receipt Date: 20080310
  Transmission Date: 20080703
  Serious: Yes (Other)
  Sender: FDA-Public Use
  Company Number: B0502154A

PATIENT
  Sex: Male

DRUGS (3)
  1. PAROXETINE HCL [Suspect]
     Indication: DEPRESSION
     Dates: start: 19990128
  2. DIAZEPAM [Concomitant]
     Dates: start: 19960215
  3. TEMAZEPAM [Concomitant]
     Dates: start: 19960320

REACTIONS (8)
  - AGGRESSION [None]
  - ALCOHOL ABUSE [None]
  - ANXIETY [None]
  - DEPRESSED MOOD [None]
  - DRUG WITHDRAWAL SYNDROME [None]
  - INSOMNIA [None]
  - IRRITABILITY [None]
  - MOOD SWINGS [None]
